FAERS Safety Report 13150269 (Version 3)
Quarter: 2017Q1

REPORT INFORMATION
  Report Type: Spontaneous
  Country: US (occurrence: US)
  Receive Date: 20170125
  Receipt Date: 20170327
  Transmission Date: 20170428
  Serious: Yes (Other)
  Sender: FDA-Public Use
  Company Number: US-AKRIMAX-TIR-2017-0052

PATIENT
  Sex: Female
  Weight: 124.4 kg

DRUGS (7)
  1. TIROSINT [Suspect]
     Active Substance: LEVOTHYROXINE SODIUM
     Indication: THYROID CANCER
     Route: 048
     Dates: start: 20160308
  2. TIROSINT [Suspect]
     Active Substance: LEVOTHYROXINE SODIUM
     Indication: THYROID CANCER
     Dosage: TWO CAPSULES EVERY OTHER DAY AT BEDTIME
     Route: 048
  3. TIROSINT [Suspect]
     Active Substance: LEVOTHYROXINE SODIUM
     Indication: THYROID CANCER
     Route: 048
  4. MIDODRINE [Concomitant]
     Active Substance: MIDODRINE
     Indication: PRODUCT USED FOR UNKNOWN INDICATION
  5. TIROSINT [Suspect]
     Active Substance: LEVOTHYROXINE SODIUM
     Indication: THYROID CANCER
     Dosage: ONCE DAILY AT BEDTIME
     Route: 048
     Dates: start: 2016
  6. TIROSINT [Suspect]
     Active Substance: LEVOTHYROXINE SODIUM
     Indication: THYROID CANCER
     Route: 048
     Dates: start: 2016
  7. TIROSINT [Suspect]
     Active Substance: LEVOTHYROXINE SODIUM
     Indication: THYROID CANCER
     Route: 048

REACTIONS (19)
  - Malaise [Recovering/Resolving]
  - Parosmia [Recovering/Resolving]
  - Dyspnoea [Recovering/Resolving]
  - Pseudostroke [Recovering/Resolving]
  - Loss of consciousness [Recovering/Resolving]
  - Poisoning [Recovering/Resolving]
  - Blood pressure decreased [Recovering/Resolving]
  - Facial paralysis [Recovering/Resolving]
  - Pruritus [Recovering/Resolving]
  - Fall [Recovering/Resolving]
  - Blood glucose abnormal [Recovering/Resolving]
  - Urticaria [Recovering/Resolving]
  - Unresponsive to stimuli [Recovering/Resolving]
  - Headache [Recovering/Resolving]
  - Visual impairment [Recovering/Resolving]
  - Tremor [Recovering/Resolving]
  - Hypoglycaemia [Recovering/Resolving]
  - Feeling abnormal [Recovering/Resolving]
  - Blood thyroid stimulating hormone abnormal [Recovering/Resolving]
